FAERS Safety Report 7212095-0 (Version None)
Quarter: 2010Q4

REPORT INFORMATION
  Report Type: 
  Country: None (occurrence: None)
  Receive Date: 20101227
  Receipt Date: 20101213
  Transmission Date: 20110411
  Serious: Yes (Disabling)
  Sender: FDA-Public Use
  Company Number: ACO_20928_2010

PATIENT
  Age: 50 Year
  Sex: Female
  Weight: 54.4 kg

DRUGS (1)
  1. AMPYRA [Suspect]
     Indication: GAIT DISTURBANCE
     Dosage: 10 MG, BID, ORAL
     Route: 048
     Dates: start: 20100901, end: 20100901

REACTIONS (2)
  - HYPOAESTHESIA [None]
  - WALKING DISABILITY [None]
